FAERS Safety Report 9559262 (Version 1)
Quarter: 2013Q3

REPORT INFORMATION
  Report Type: Spontaneous
  Country: US (occurrence: US)
  Receive Date: 20130927
  Receipt Date: 20130927
  Transmission Date: 20140515
  Serious: Yes (Death)
  Sender: FDA-Public Use
  Company Number: PHEH2013US020201

PATIENT
  Age: 79 Year
  Sex: Male

DRUGS (1)
  1. VIVELLE DOT [Suspect]
     Indication: PROSTATE CANCER
     Dosage: 0.1 MG, TID
     Route: 062

REACTIONS (1)
  - Death [Fatal]
